FAERS Safety Report 10276471 (Version 1)
Quarter: 2014Q3

REPORT INFORMATION
  Report Type: Spontaneous
  Country: US (occurrence: US)
  Receive Date: 20140703
  Receipt Date: 20140703
  Transmission Date: 20150326
  Serious: Yes (Death, Hospitalization)
  Sender: FDA-Public Use
  Company Number: US-CUBIST PHARMACEUTICAL, INC.-2014CBST000980

PATIENT

DRUGS (23)
  1. CUBICIN [Suspect]
     Active Substance: DAPTOMYCIN
     Indication: DEVICE RELATED INFECTION
     Dosage: UNK UNK, UNK
     Route: 042
  2. DOXYCYCLINE. [Concomitant]
     Active Substance: DOXYCYCLINE
     Indication: DEVICE RELATED INFECTION
     Dosage: UNK UNK, UNK
     Route: 048
  3. DOXYCYCLINE. [Concomitant]
     Active Substance: DOXYCYCLINE
     Indication: KLEBSIELLA INFECTION
  4. AMIKACIN [Concomitant]
     Active Substance: AMIKACIN
     Indication: ARTHRITIS INFECTIVE
  5. CUBICIN [Suspect]
     Active Substance: DAPTOMYCIN
     Indication: KLEBSIELLA INFECTION
  6. CUBICIN [Suspect]
     Active Substance: DAPTOMYCIN
     Indication: OFF LABEL USE
  7. PIPERACILLIN/TAZOBACTAM [Concomitant]
     Active Substance: PIPERACILLIN SODIUM\TAZOBACTAM SODIUM
     Indication: STAPHYLOCOCCAL INFECTION
  8. TIGECYCLINE [Concomitant]
     Active Substance: TIGECYCLINE
     Indication: ARTHRITIS INFECTIVE
  9. DOXYCYCLINE. [Concomitant]
     Active Substance: DOXYCYCLINE
     Indication: ARTHRITIS INFECTIVE
  10. COLISTIN [Concomitant]
     Active Substance: COLISTIN
     Indication: DEVICE RELATED INFECTION
     Dosage: UNK, UNK
     Route: 042
  11. COLISTIN [Concomitant]
     Active Substance: COLISTIN
     Indication: ARTHRITIS INFECTIVE
  12. COLISTIN [Concomitant]
     Active Substance: COLISTIN
     Indication: KLEBSIELLA INFECTION
  13. AMIKACIN [Concomitant]
     Active Substance: AMIKACIN
     Indication: KLEBSIELLA INFECTION
  14. TIGECYCLINE [Concomitant]
     Active Substance: TIGECYCLINE
     Indication: DEVICE RELATED INFECTION
     Dosage: UNK UNK, UNK
     Route: 042
  15. TIGECYCLINE [Concomitant]
     Active Substance: TIGECYCLINE
     Indication: KLEBSIELLA INFECTION
  16. FLUCONAZOLE. [Concomitant]
     Active Substance: FLUCONAZOLE
     Indication: ARTHRITIS INFECTIVE
  17. OXACILLIN [Concomitant]
     Active Substance: OXACILLIN SODIUM
     Indication: STAPHYLOCOCCAL INFECTION
  18. OXACILLIN [Concomitant]
     Active Substance: OXACILLIN SODIUM
     Indication: DEVICE RELATED INFECTION
     Dosage: UNK UNK, UNK
     Route: 042
  19. FLUCONAZOLE. [Concomitant]
     Active Substance: FLUCONAZOLE
     Indication: DEVICE RELATED INFECTION
     Dosage: UNK UNK, UNK
     Route: 048
  20. FLUCONAZOLE. [Concomitant]
     Active Substance: FLUCONAZOLE
     Indication: KLEBSIELLA INFECTION
  21. CUBICIN [Suspect]
     Active Substance: DAPTOMYCIN
     Indication: ARTHRITIS INFECTIVE
  22. AMIKACIN [Concomitant]
     Active Substance: AMIKACIN
     Indication: DEVICE RELATED INFECTION
     Dosage: UNK, UNK
     Route: 042
  23. PIPERACILLIN/TAZOBACTAM [Concomitant]
     Active Substance: PIPERACILLIN SODIUM\TAZOBACTAM SODIUM
     Indication: DEVICE RELATED INFECTION
     Dosage: UNK UNK, UNK
     Route: 065

REACTIONS (6)
  - Leg amputation [Unknown]
  - White blood cell count decreased [Not Recovered/Not Resolved]
  - Death [Fatal]
  - Acinetobacter infection [Unknown]
  - Fungal infection [Unknown]
  - Device related infection [Unknown]
